FAERS Safety Report 25777317 (Version 1)
Quarter: 2025Q3

REPORT INFORMATION
  Report Type: Spontaneous
  Country: CH (occurrence: CH)
  Receive Date: 20250909
  Receipt Date: 20250909
  Transmission Date: 20251021
  Serious: Yes (Hospitalization)
  Sender: TAKEDA
  Company Number: None

PATIENT
  Age: 57 Year
  Sex: Male

DRUGS (5)
  1. VORTIOXETINE [Interacting]
     Active Substance: VORTIOXETINE
     Indication: Product used for unknown indication
     Dosage: 20 MILLIGRAM, QD
  2. VALPROIC ACID [Interacting]
     Active Substance: VALPROIC ACID
     Indication: Product used for unknown indication
     Dosage: 750 MILLIGRAM, QD
  3. FYCOMPA [Interacting]
     Active Substance: PERAMPANEL
     Indication: Product used for unknown indication
     Dosage: 2 MILLIGRAM, QD
  4. LAMOTRIGINE [Interacting]
     Active Substance: LAMOTRIGINE
     Indication: Product used for unknown indication
     Dosage: 600 MILLIGRAM, QD
  5. ATORVASTATIN [Concomitant]
     Active Substance: ATORVASTATIN
     Indication: Product used for unknown indication
     Dosage: 20 MILLIGRAM, QD

REACTIONS (9)
  - Condition aggravated [Not Recovered/Not Resolved]
  - Dizziness [Not Recovered/Not Resolved]
  - Diplopia [Not Recovered/Not Resolved]
  - Gait disturbance [Not Recovered/Not Resolved]
  - Fall [Not Recovered/Not Resolved]
  - Nausea [Not Recovered/Not Resolved]
  - Coordination abnormal [Not Recovered/Not Resolved]
  - Vomiting [Not Recovered/Not Resolved]
  - Drug interaction [Not Recovered/Not Resolved]

NARRATIVE: CASE EVENT DATE: 20250615
